FAERS Safety Report 17794734 (Version 1)
Quarter: 2020Q2

REPORT INFORMATION
  Report Type: Spontaneous
  Country: US (occurrence: US)
  Receive Date: 20200515
  Receipt Date: 20200515
  Transmission Date: 20200714
  Serious: No
  Sender: FDA-Public Use
  Company Number: US-FRESENIUS MEDICAL CARE RENAL THERAPIES GROUP-FMC-2005-000502

PATIENT
  Age: 41 Year
  Sex: Male

DRUGS (3)
  1. DELFLEX WITH DEXTROSE 2.5% LOW MAGNESIUM LOW CALCIUM [Suspect]
     Active Substance: CALCIUM CHLORIDE\DEXTROSE\MAGNESIUM CHLORIDE\SODIUM CHLORIDE\SODIUM LACTATE
     Indication: END STAGE RENAL DISEASE
     Dosage: FILLS 4; FILL VOLUME 2000 ML; LAST FILL VOLUME 0ML; TOTAL VOLUME 6000 ML; TOTAL SLEEP TIME 8 HR 0 M
     Route: 033
     Dates: start: 20200124
  2. DELFLEX WITH DEXTROSE 1.5% LOW MAGNESIUM LOW CALCIUM [Suspect]
     Active Substance: CALCIUM CHLORIDE\DEXTROSE\MAGNESIUM CHLORIDE\SODIUM CHLORIDE\SODIUM LACTATE
     Indication: END STAGE RENAL DISEASE
     Dosage: FILLS 4; FILL VOLUME 2000 ML; LAST FILL VOLUME 0ML; TOTAL VOLUME 6000 ML; TOTAL SLEEP TIME 8 HR 0 M
     Route: 033
     Dates: start: 20200124
  3. DELFLEX WITH DEXTROSE 4.25% LOW MAGNESIUM LOW CALCIUM [Suspect]
     Active Substance: CALCIUM CHLORIDE\DEXTROSE\MAGNESIUM CHLORIDE\SODIUM CHLORIDE\SODIUM LACTATE
     Indication: END STAGE RENAL DISEASE
     Dosage: FILLS 4; FILL VOLUME 2000 ML; LAST FILL VOLUME 0ML; TOTAL VOLUME 6000 ML; TOTAL SLEEP TIME 8 HR 0 M
     Route: 033
     Dates: start: 20200124

REACTIONS (1)
  - Hernia [Recovering/Resolving]

NARRATIVE: CASE EVENT DATE: 202002
